FAERS Safety Report 8517923-4 (Version None)
Quarter: 2012Q3

REPORT INFORMATION
  Report Type: 
  Country: None (occurrence: None)
  Receive Date: 20120718
  Receipt Date: 20110719
  Transmission Date: 20120928
  Serious: No
  Sender: FDA-Public Use
  Company Number: US-BRISTOL-MYERS SQUIBB COMPANY-15911696

PATIENT
  Age: 83 Year
  Sex: Female
  Weight: 59 kg

DRUGS (1)
  1. COUMADIN [Suspect]
     Indication: CARDIAC DISORDER
     Dosage: 2MONTHS AGO;6MG ON TUE+THU,3MG ON REMAINING DAYS.6MG ON MON,WED,FRI.3MG ON THE REMAINING DAYS

REACTIONS (1)
  - INTERNATIONAL NORMALISED RATIO DECREASED [None]
